FAERS Safety Report 21269434 (Version 10)
Quarter: 2023Q2

REPORT INFORMATION
  Report Type: Report from Study
  Country: EC (occurrence: EC)
  Receive Date: 20220830
  Receipt Date: 20230530
  Transmission Date: 20230722
  Serious: Yes (Hospitalization)
  Sender: FDA-Public Use
  Company Number: EC-NOVARTISPH-NVSC2022EC183109

PATIENT
  Age: 43 Year
  Sex: Female

DRUGS (3)
  1. KISQALI [Suspect]
     Active Substance: RIBOCICLIB
     Indication: Breast cancer
     Dosage: 400 MG, QD
     Route: 048
     Dates: start: 202101, end: 20230310
  2. KISQALI [Suspect]
     Active Substance: RIBOCICLIB
     Dosage: 400 MG, QD
     Route: 048
     Dates: start: 20210102
  3. KISQALI [Suspect]
     Active Substance: RIBOCICLIB
     Dosage: 200 MG, QD
     Route: 048
     Dates: start: 202207

REACTIONS (25)
  - Spinal pain [Recovering/Resolving]
  - Bone pain [Recovering/Resolving]
  - Influenza [Recovering/Resolving]
  - Crying [Unknown]
  - Depressed mood [Unknown]
  - Depression [Unknown]
  - Skin burning sensation [Unknown]
  - Pigmentation disorder [Unknown]
  - General physical health deterioration [Not Recovered/Not Resolved]
  - Pain in extremity [Unknown]
  - Somnolence [Unknown]
  - Abdominal discomfort [Unknown]
  - Bone pain [Unknown]
  - Discomfort [Recovering/Resolving]
  - COVID-19 [Recovering/Resolving]
  - Oropharyngeal discomfort [Unknown]
  - Fall [Unknown]
  - Limb injury [Not Recovered/Not Resolved]
  - Pain [Unknown]
  - Movement disorder [Unknown]
  - Nasal injury [Unknown]
  - Skin disorder [Not Recovered/Not Resolved]
  - Decreased immune responsiveness [Unknown]
  - Rash [Not Recovered/Not Resolved]
  - Inappropriate schedule of product administration [Unknown]

NARRATIVE: CASE EVENT DATE: 20210101
